FAERS Safety Report 11233566 (Version 1)
Quarter: 2015Q3

REPORT INFORMATION
  Report Type: Spontaneous
  Country: FR (occurrence: FR)
  Receive Date: 20150702
  Receipt Date: 20150702
  Transmission Date: 20151125
  Serious: Yes (Other)
  Sender: FDA-Public Use
  Company Number: FR-CIPLA LTD.-2015FR05133

PATIENT

DRUGS (5)
  1. PACLITAXEL. [Suspect]
     Active Substance: PACLITAXEL
     Dosage: 360 MG/M2 (CONTINUOUS INFUSION, 120 MG/M2/DAY FOR 3 DAYS)
  2. EPIRUBICIN [Suspect]
     Active Substance: EPIRUBICIN
     Indication: GERM CELL CANCER
     Dosage: 100 MG/M2 IN A 3-H INFUSION, ADMINISTERED ON DAYS 1 AND 15
  3. THIOTEPA. [Suspect]
     Active Substance: THIOTEPA
     Indication: GERM CELL CANCER
     Dosage: 720 MG/M2; 6-H INFUSION, 240 MG/M2/DAY
  4. PACLITAXEL. [Suspect]
     Active Substance: PACLITAXEL
     Indication: GERM CELL CANCER
     Dosage: 250 MG/M2 IN A 3-H INFUSION, ADMINISTERED BOTH ON DAYS 1 AND 15
  5. SODIUM MERCAPTOETHANESULFONATE [Concomitant]
     Dosage: UNK
     Route: 065

REACTIONS (1)
  - Herpes zoster [Unknown]
